FAERS Safety Report 6399035-1 (Version None)
Quarter: 2009Q4

REPORT INFORMATION
  Report Type: 
  Country: None (occurrence: None)
  Receive Date: 20091008
  Receipt Date: 20091008
  Transmission Date: 20100525
  Serious: Yes (Disabling)
  Sender: FDA-Public Use
  Company Number: None

PATIENT
  Age: 35 Year
  Sex: Female
  Weight: 127.0072 kg

DRUGS (1)
  1. PLAVIX [Suspect]
     Indication: CEREBROVASCULAR ACCIDENT
     Dosage: 75MG 1 DAILY PO  (AT THE END OF APRIL)
     Route: 048
     Dates: start: 20090918, end: 20090925

REACTIONS (9)
  - CONSTIPATION [None]
  - FATIGUE [None]
  - FEELING ABNORMAL [None]
  - PAIN [None]
  - PRURITUS [None]
  - PRURITUS GENERALISED [None]
  - PYREXIA [None]
  - SWELLING [None]
  - VISION BLURRED [None]
